FAERS Safety Report 23444389 (Version 1)
Quarter: 2024Q1

REPORT INFORMATION
  Report Type: Report from Study
  Country: US (occurrence: US)
  Receive Date: 20240125
  Receipt Date: 20240125
  Transmission Date: 20240410
  Serious: Yes (Other)
  Sender: FDA-Public Use
  Company Number: US-ABBVIE-5589161

PATIENT
  Age: 47 Year
  Sex: Male
  Weight: 64 kg

DRUGS (5)
  1. CREON [Suspect]
     Active Substance: PANCRELIPASE AMYLASE\PANCRELIPASE LIPASE\PANCRELIPASE PROTEASE
     Indication: Pancreatitis chronic
     Route: 048
     Dates: end: 202401
  2. CREON [Suspect]
     Active Substance: PANCRELIPASE AMYLASE\PANCRELIPASE LIPASE\PANCRELIPASE PROTEASE
     Indication: Pancreatitis chronic
     Dosage: CHANGED DOSAGE TO 24,000 UNITS 2 PILLS 3 TIMES DAILY.
     Route: 048
  3. CREON [Suspect]
     Active Substance: PANCRELIPASE AMYLASE\PANCRELIPASE LIPASE\PANCRELIPASE PROTEASE
     Indication: Pancreatitis chronic
     Dosage: FORM STRENGTH: 12000 UNIT?FREQUENCY TEXT: 2 CAPSULES 3X A DAY
     Route: 048
     Dates: start: 202401
  4. CREON [Suspect]
     Active Substance: PANCRELIPASE AMYLASE\PANCRELIPASE LIPASE\PANCRELIPASE PROTEASE
     Indication: Pancreatitis chronic
     Dosage: TIME INTERVAL: 0.33333333 DAYS: CHANGED DOSAGE TO 36,000 UNITS 2 PILLS 3 TIMES DAILY.
     Route: 048
  5. CREON [Suspect]
     Active Substance: PANCRELIPASE AMYLASE\PANCRELIPASE LIPASE\PANCRELIPASE PROTEASE
     Indication: Pancreatitis chronic
     Dosage: FORM STRENGTH: 12000 UNIT?FREQUENCY TEXT: 1 CAPSULE 3X A DAY
     Route: 048
     Dates: start: 2022

REACTIONS (8)
  - Stent placement [Unknown]
  - Dyspepsia [Not Recovered/Not Resolved]
  - Therapeutic product effect decreased [Not Recovered/Not Resolved]
  - Impaired gastric emptying [Not Recovered/Not Resolved]
  - Vomiting [Not Recovered/Not Resolved]
  - Enzyme level decreased [Not Recovered/Not Resolved]
  - Weight decreased [Not Recovered/Not Resolved]
  - Enzyme abnormality [Unknown]

NARRATIVE: CASE EVENT DATE: 20231001
